FAERS Safety Report 7931396-1 (Version None)
Quarter: 2011Q4

REPORT INFORMATION
  Report Type: 
  Country: None (occurrence: None)
  Receive Date: 20111121
  Receipt Date: 20111117
  Transmission Date: 20120403
  Serious: Yes (Hospitalization)
  Sender: FDA-Public Use
  Company Number: US-GILEAD-2011-0045845

PATIENT
  Sex: Male

DRUGS (5)
  1. VENTAVIS [Concomitant]
  2. LETAIRIS [Suspect]
     Indication: CORONARY ARTERY DISEASE
  3. TYVASO [Concomitant]
  4. LETAIRIS [Suspect]
     Indication: PULMONARY HYPERTENSION
     Dosage: 10 MG, UNK
     Route: 048
     Dates: start: 20070913
  5. ADCIRCA [Concomitant]

REACTIONS (1)
  - DEVICE RELATED INFECTION [None]
